APPROVED DRUG PRODUCT: METHOCARBAMOL
Active Ingredient: METHOCARBAMOL
Strength: 750MG
Dosage Form/Route: TABLET;ORAL
Application: A089082 | Product #001
Applicant: PIONEER PHARMACEUTICALS INC
Approved: Dec 13, 1985 | RLD: No | RS: No | Type: DISCN